FAERS Safety Report 8343603-4 (Version None)
Quarter: 2012Q2

REPORT INFORMATION
  Report Type: 
  Country: None (occurrence: None)
  Receive Date: 20120503
  Receipt Date: 20120503
  Transmission Date: 20120825
  Serious: Yes (Hospitalization)
  Sender: FDA-Public Use
  Company Number: None

PATIENT
  Sex: Female
  Weight: 12.1 kg

DRUGS (11)
  1. ACETAMINOPHEN [Concomitant]
  2. MELATONIN [Concomitant]
  3. DOXORUBICIN HYDROCHLORIDE [Suspect]
     Dosage: 16 MG
  4. VINCRISTINE SULFATE [Suspect]
     Dosage: 2.4 MG
  5. HEPARIN [Concomitant]
  6. FUROSEMIDE [Concomitant]
  7. GLUTAMINE [Concomitant]
  8. AMPLODIPINE [Concomitant]
  9. ANTITHROMBIN III [Concomitant]
  10. ENALIPRIL [Concomitant]
  11. DACTINOMYCIN [Suspect]
     Dosage: 1080 MCG

REACTIONS (3)
  - PLEURAL EFFUSION [None]
  - RESPIRATORY DISORDER [None]
  - VENOOCCLUSIVE LIVER DISEASE [None]
